FAERS Safety Report 12235288 (Version 1)
Quarter: 2016Q2

REPORT INFORMATION
  Report Type: Spontaneous
  Country: CA (occurrence: CA)
  Receive Date: 20160404
  Receipt Date: 20160404
  Transmission Date: 20160815
  Serious: Yes (Other)
  Sender: FDA-Public Use
  Company Number: CA-BAYER-2016-056766

PATIENT
  Age: 56 Year
  Sex: Female
  Weight: 52.15 kg

DRUGS (4)
  1. VENTOLIN [Concomitant]
     Active Substance: ALBUTEROL SULFATE
     Dosage: UNK
  2. ATIVAN [Concomitant]
     Active Substance: LORAZEPAM
     Dosage: UNK
  3. SYMBICORT [Concomitant]
     Active Substance: BUDESONIDE\FORMOTEROL FUMARATE DIHYDRATE
     Dosage: UNK
  4. AVELOX [Suspect]
     Active Substance: MOXIFLOXACIN HYDROCHLORIDE
     Indication: SINUSITIS
     Dosage: 400 MG, QD
     Route: 048

REACTIONS (6)
  - Muscular weakness [Recovered/Resolved]
  - Thirst [Recovered/Resolved]
  - Pain in extremity [Recovered/Resolved]
  - Dry mouth [Recovered/Resolved]
  - Paraesthesia [Recovered/Resolved]
  - Peripheral swelling [Recovered/Resolved]
